FAERS Safety Report 14418951 (Version 11)
Quarter: 2019Q1

REPORT INFORMATION
  Report Type: Report from Study
  Country: CA (occurrence: CA)
  Receive Date: 20180122
  Receipt Date: 20190221
  Transmission Date: 20190417
  Serious: Yes (Death)
  Sender: FDA-Public Use
  Company Number: CA-HLSUS-2018-CA-000113

PATIENT
  Age: 77 Year
  Sex: Male

DRUGS (1)
  1. CLOZARIL [Suspect]
     Active Substance: CLOZAPINE
     Route: 048
     Dates: start: 20100412

REACTIONS (9)
  - Neutrophilia [Unknown]
  - Death [Fatal]
  - Anaemia [Unknown]
  - Leukocytosis [Unknown]
  - Myelodysplastic syndrome [Unknown]
  - Neutrophilia [Unknown]
  - Parkinson^s disease [Unknown]
  - Leukocytosis [Unknown]
  - Salivary hypersecretion [Unknown]

NARRATIVE: CASE EVENT DATE: 20180114
